FAERS Safety Report 17657093 (Version 5)
Quarter: 2020Q3

REPORT INFORMATION
  Report Type: Report from Study
  Country: IT (occurrence: IT)
  Receive Date: 20200410
  Receipt Date: 20200716
  Transmission Date: 20201104
  Serious: Yes (Hospitalization)
  Sender: FDA-Public Use
  Company Number: IT-CELGENEUS-ITA-20180510903

PATIENT
  Age: 23 Year
  Sex: Male
  Weight: 50 kg

DRUGS (2)
  1. MESALAMINE. [Concomitant]
     Active Substance: MESALAMINE
     Indication: COLITIS ULCERATIVE
     Dosage: 4.8 GRAM
     Route: 048
     Dates: start: 20120508
  2. OZANIMOD. [Suspect]
     Active Substance: OZANIMOD
     Indication: COLITIS ULCERATIVE
     Dosage: 1 MILLIGRAM
     Route: 048
     Dates: start: 20171222, end: 20180529

REACTIONS (1)
  - Diarrhoea [Recovered/Resolved]

NARRATIVE: CASE EVENT DATE: 20180529
